FAERS Safety Report 8431001-4 (Version None)
Quarter: 2012Q2

REPORT INFORMATION
  Report Type: 
  Country: None (occurrence: None)
  Receive Date: 20120612
  Receipt Date: 20120530
  Transmission Date: 20120825
  Serious: Yes (Hospitalization)
  Sender: FDA-Public Use
  Company Number: DE-MYLANLABS-2012S1011485

PATIENT
  Age: 17 Year
  Sex: Male

DRUGS (8)
  1. ROCURONIUM BROMIDE [Concomitant]
     Indication: ANAESTHESIA
     Dosage: 0.6 MG/KG FOR INDUCTION, ADDITIONAL BOLUSES FOR MAINTENANCE
     Route: 065
  2. PROPOFOL [Concomitant]
     Indication: INDUCTION OF ANAESTHESIA
     Route: 065
  3. SEVOFLURANE [Concomitant]
     Indication: MAINTENANCE OF ANAESTHESIA
     Dosage: ENDTIDAL CONCENTRATION 1.2 VOL%
     Route: 065
  4. PROPOFOL [Concomitant]
     Indication: ANAESTHESIA
     Route: 065
  5. NOREPINEPHRINE BITARTRATE [Concomitant]
     Indication: HYPOTENSION
     Route: 065
  6. FUROSEMIDE [Concomitant]
     Indication: PULMONARY OEDEMA
     Route: 042
  7. ROCURONIUM BROMIDE [Concomitant]
     Route: 065
  8. FENTANYL [Suspect]
     Indication: ANAESTHESIA
     Dosage: 3 MICROG/KG FOR INDUCTION, ADDITIONAL BOLUSES FOR MAINTENANCE, TOTAL 1.3MG
     Route: 065

REACTIONS (3)
  - APNOEA [None]
  - ACCIDENTAL OVERDOSE [None]
  - DEPRESSED LEVEL OF CONSCIOUSNESS [None]
